FAERS Safety Report 12852022 (Version 1)
Quarter: 2016Q4

REPORT INFORMATION
  Report Type: Spontaneous
  Country: CN (occurrence: CN)
  Receive Date: 20161017
  Receipt Date: 20161017
  Transmission Date: 20170207
  Serious: Yes (Life-Threatening, Hospitalization, Other)
  Sender: FDA-Public Use
  Company Number: PHHY2016CN139827

PATIENT
  Age: 52 Year
  Sex: Male

DRUGS (5)
  1. MYFORTIC [Suspect]
     Active Substance: MYCOPHENOLATE SODIUM
     Indication: RENAL TRANSPLANT
     Dosage: 1080 MG, Q12H
     Route: 048
     Dates: start: 20160602, end: 20160603
  2. NEORAL [Suspect]
     Active Substance: CYCLOSPORINE
     Indication: RENAL TRANSPLANT
     Dosage: 100 MG, Q12H
     Route: 048
     Dates: start: 20160602
  3. NEORAL [Suspect]
     Active Substance: CYCLOSPORINE
     Dosage: 125 MG, Q12H
     Route: 048
  4. NEORAL [Suspect]
     Active Substance: CYCLOSPORINE
     Dosage: 150 MG, Q12H
     Route: 048
     Dates: end: 20160822
  5. SIMULECT [Suspect]
     Active Substance: BASILIXIMAB
     Indication: RENAL TRANSPLANT
     Dosage: 20 MG, UNK
     Route: 042
     Dates: start: 20160602, end: 20160606

REACTIONS (5)
  - Epstein-Barr virus infection [Unknown]
  - C-reactive protein increased [Unknown]
  - Cytomegalovirus infection [Unknown]
  - Blood glucose increased [Unknown]
  - Kidney transplant rejection [Recovering/Resolving]

NARRATIVE: CASE EVENT DATE: 20160719
